FAERS Safety Report 5506227-X (Version None)
Quarter: 2007Q4

REPORT INFORMATION
  Report Type: 
  Country: None (occurrence: None)
  Receive Date: 20071105
  Receipt Date: 20071024
  Transmission Date: 20080405
  Serious: Yes (Other)
  Sender: FDA-Public Use
  Company Number: CA-ELI_LILLY_AND_COMPANY-CA200707001090

PATIENT
  Age: 37 Year
  Sex: Female

DRUGS (2)
  1. ZYPREXA [Suspect]
     Indication: SCHIZOAFFECTIVE DISORDER
     Dosage: 7.5 MG, EACH EVENING
     Route: 048
  2. PHENYLEPHRINE W/TROPICAMIDE [Interacting]
     Indication: OPHTHALMOLOGICAL EXAMINATION
     Dosage: UNK, UNK
     Route: 047
     Dates: start: 20070619, end: 20070619

REACTIONS (8)
  - BLINDNESS TRANSIENT [None]
  - DIABETES MELLITUS [None]
  - DIPLOPIA [None]
  - DRUG INTERACTION [None]
  - EYE MOVEMENT DISORDER [None]
  - MYDRIASIS [None]
  - MYOPIA [None]
  - VISUAL DISTURBANCE [None]
